FAERS Safety Report 7687826-6 (Version None)
Quarter: 2011Q3

REPORT INFORMATION
  Report Type: 
  Country: None (occurrence: None)
  Receive Date: 20110815
  Receipt Date: 20110815
  Transmission Date: 20111222
  Serious: No
  Sender: FDA-Public Use
  Company Number: None

PATIENT
  Sex: Male
  Weight: 86.1834 kg

DRUGS (1)
  1. WELLBUTRIN XL [Suspect]
     Dosage: 150 MG TCR 300MG 1 TAB/MORNING ORAL
     Route: 048

REACTIONS (4)
  - INCREASED UPPER AIRWAY SECRETION [None]
  - SINUS DISORDER [None]
  - PRODUCT SUBSTITUTION ISSUE [None]
  - SWELLING [None]
